FAERS Safety Report 5004200-1 (Version None)
Quarter: 2006Q2

REPORT INFORMATION
  Report Type: 
  Country: None (occurrence: None)
  Receive Date: 20060517
  Receipt Date: 20060113
  Transmission Date: 20061013
  Serious: Yes (Other)
  Sender: FDA-Public Use
  Company Number: PHNU2006DE00538

PATIENT
  Age: 63 Year
  Sex: Female
  Weight: 65 kg

DRUGS (2)
  1. ZOMETA [Suspect]
     Indication: MULTIPLE MYELOMA
     Dosage: 4 MG, QMO
     Route: 042
     Dates: start: 20030101, end: 20050701
  2. VELCADE [Concomitant]
     Indication: PLASMACYTOMA
     Dosage: 1.8 MG, Q96H
     Route: 065
     Dates: start: 20040830, end: 20041130

REACTIONS (4)
  - DENTAL TREATMENT [None]
  - JAW DISORDER [None]
  - OSTEONECROSIS [None]
  - TOOTH DISORDER [None]
